FAERS Safety Report 7539124-9 (Version None)
Quarter: 2011Q2

REPORT INFORMATION
  Report Type: 
  Country: None (occurrence: None)
  Receive Date: 20110610
  Receipt Date: 20020311
  Transmission Date: 20111010
  Serious: Yes (Hospitalization)
  Sender: FDA-Public Use
  Company Number: PHBS2002CA02138

PATIENT
  Sex: Female

DRUGS (4)
  1. CLONAZEPAM [Concomitant]
     Dosage: 2 MG, QHS
     Route: 065
  2. CLOZAPINE [Suspect]
     Indication: SCHIZOPHRENIA
     Route: 048
     Dates: start: 20011126, end: 20020304
  3. OLANZAPINE [Concomitant]
     Dosage: 5 MG, QD
     Route: 065
  4. TRAZODONE HCL [Concomitant]
     Dosage: 150 MG, QHS
     Route: 065

REACTIONS (1)
  - APPENDICITIS [None]
